FAERS Safety Report 6877685-3 (Version None)
Quarter: 2010Q3

REPORT INFORMATION
  Report Type: 
  Country: None (occurrence: None)
  Receive Date: 20100727
  Receipt Date: 20100507
  Transmission Date: 20110219
  Serious: No
  Sender: FDA-Public Use
  Company Number: US-ABBOTT-10P-163-0643670-00

PATIENT
  Sex: Female
  Weight: 58.112 kg

DRUGS (6)
  1. SYNTHROID [Suspect]
     Indication: HYPOTHYROIDISM
     Route: 048
     Dates: start: 20010315, end: 20010507
  2. SYNTHROID [Suspect]
     Dates: start: 20010507, end: 20080502
  3. SYNTHROID [Suspect]
     Dates: start: 20080502, end: 20090421
  4. SYNTHROID [Suspect]
     Dates: start: 20090421
  5. ZOLOFT [Concomitant]
     Indication: DEPRESSION
     Dosage: BID
     Route: 048
     Dates: start: 19980210
  6. MULTI-VITAMIN [Concomitant]
     Indication: VITAMIN SUPPLEMENTATION

REACTIONS (1)
  - THERAPEUTIC RESPONSE DECREASED [None]
